FAERS Safety Report 14345048 (Version 2)
Quarter: 2018Q2

REPORT INFORMATION
  Report Type: Report from Study
  Country: JP (occurrence: JP)
  Receive Date: 20180103
  Receipt Date: 20180406
  Transmission Date: 20180711
  Serious: Yes (Other)
  Sender: FDA-Public Use
  Company Number: JP-CONCORDIA PHARMACEUTICALS INC.-GSH201801-000011

PATIENT
  Age: 46 Year
  Sex: Female

DRUGS (4)
  1. PLAQUENIL [Suspect]
     Active Substance: HYDROXYCHLOROQUINE SULFATE
     Indication: SYSTEMIC LUPUS ERYTHEMATOSUS
     Route: 048
     Dates: start: 20160810, end: 20160901
  2. OMEPRAL [Concomitant]
     Active Substance: OMEPRAZOLE
  3. PREDNISOLONE. [Concomitant]
     Active Substance: PREDNISOLONE
  4. ROCALTROL [Concomitant]
     Active Substance: CALCITRIOL

REACTIONS (2)
  - Pruritus [Recovered/Resolved]
  - Generalised erythema [Recovered/Resolved]

NARRATIVE: CASE EVENT DATE: 20160830
